FAERS Safety Report 7316038-0 (Version None)
Quarter: 2011Q1

REPORT INFORMATION
  Report Type: 
  Country: None (occurrence: None)
  Receive Date: 20110225
  Receipt Date: 20110224
  Transmission Date: 20110831
  Serious: Yes (Death, Other)
  Sender: FDA-Public Use
  Company Number: PHHY2011EC06798

PATIENT
  Sex: Female

DRUGS (5)
  1. RASILEZ [Suspect]
     Indication: HYPERTENSION
     Dosage: 300 MG, QD
     Dates: start: 20100601
  2. CATAPRESA [Concomitant]
  3. LOSARTAN POTASSIUM [Concomitant]
     Dosage: UNK
  4. ENDIAL [Concomitant]
  5. NORVASC [Concomitant]

REACTIONS (2)
  - CHEST PAIN [None]
  - ARTERIAL RUPTURE [None]
